FAERS Safety Report 9731638 (Version 1)
Quarter: 2013Q4

REPORT INFORMATION
  Report Type: Spontaneous
  Country: US (occurrence: US)
  Receive Date: 20131205
  Receipt Date: 20131205
  Transmission Date: 20140711
  Serious: No
  Sender: FDA-Public Use
  Company Number: US-JNJFOC-20131113005

PATIENT
  Sex: Female
  Weight: 72.58 kg

DRUGS (4)
  1. DURAGESIC [Suspect]
     Indication: INTERVERTEBRAL DISC PROTRUSION
     Route: 062
  2. OXYCONTIN [Concomitant]
     Indication: INTERVERTEBRAL DISC PROTRUSION
     Route: 048
  3. LEXAPRO [Concomitant]
     Indication: PAIN
     Route: 048
  4. LEXAPRO [Concomitant]
     Indication: DEPRESSION
     Route: 048

REACTIONS (4)
  - Hyperhidrosis [Not Recovered/Not Resolved]
  - Product quality issue [Not Recovered/Not Resolved]
  - Application site exfoliation [Not Recovered/Not Resolved]
  - Wrong technique in drug usage process [Unknown]
